FAERS Safety Report 17841618 (Version 2)
Quarter: 2022Q1

REPORT INFORMATION
  Report Type: Spontaneous
  Country: US (occurrence: US)
  Receive Date: 20200529
  Receipt Date: 20220309
  Transmission Date: 20220423
  Serious: No
  Sender: FDA-Public Use
  Company Number: US-PFIZER INC-2020210237

PATIENT
  Age: 80 Year
  Sex: Female

DRUGS (2)
  1. METHOTREXATE SODIUM [Suspect]
     Active Substance: METHOTREXATE SODIUM
     Dosage: 17.5 MG, WEEKLY
  2. METHOTREXATE SODIUM [Suspect]
     Active Substance: METHOTREXATE SODIUM
     Dosage: 15 MG, WEEKLY

REACTIONS (8)
  - Drug ineffective [Unknown]
  - Drug intolerance [Unknown]
  - Alopecia [Unknown]
  - Oral pain [Unknown]
  - Red blood cell sedimentation rate increased [Unknown]
  - Arthropathy [Unknown]
  - Off label use [Unknown]
  - Contraindicated product administered [Unknown]
